FAERS Safety Report 7598697-0 (Version None)
Quarter: 2011Q3

REPORT INFORMATION
  Report Type: 
  Country: None (occurrence: None)
  Receive Date: 20110711
  Receipt Date: 20110630
  Transmission Date: 20111222
  Serious: Yes (Hospitalization)
  Sender: FDA-Public Use
  Company Number: US-BIOGENIDEC-2011BI018577

PATIENT
  Age: 63 Year
  Sex: Female

DRUGS (2)
  1. AVONEX [Suspect]
     Indication: MULTIPLE SCLEROSIS
     Route: 030
     Dates: end: 20100101
  2. AVONEX [Suspect]
     Route: 030

REACTIONS (5)
  - HIP FRACTURE [None]
  - MEMORY IMPAIRMENT [None]
  - FALL [None]
  - CEREBROVASCULAR ACCIDENT [None]
  - DRUG INEFFECTIVE [None]
